FAERS Safety Report 8326946-X (Version None)
Quarter: 2012Q2

REPORT INFORMATION
  Report Type: 
  Country: None (occurrence: None)
  Receive Date: 20120501
  Receipt Date: 20120418
  Transmission Date: 20120825
  Serious: Yes (Hospitalization)
  Sender: FDA-Public Use
  Company Number: TN-MYLANLABS-2012S1008317

PATIENT
  Age: 66 Year
  Sex: Female

DRUGS (4)
  1. LEVOTHYROXINE SODIUM [Concomitant]
     Indication: POSTPARTUM HYPOPITUITARISM
     Route: 065
     Dates: start: 20000101
  2. FENOFIBRATE [Suspect]
     Indication: DYSLIPIDAEMIA
     Route: 065
     Dates: start: 20100610, end: 20100809
  3. HYDROCORTISONE [Concomitant]
     Indication: POSTPARTUM HYPOPITUITARISM
     Route: 065
     Dates: start: 20000101
  4. NIFEDIPINE [Concomitant]
     Indication: HYPERTENSION
     Route: 065
     Dates: start: 20080101

REACTIONS (1)
  - DRUG RASH WITH EOSINOPHILIA AND SYSTEMIC SYMPTOMS [None]
